FAERS Safety Report 9612979 (Version 2)
Quarter: 2014Q1

REPORT INFORMATION
  Report Type: Spontaneous
  Country: US (occurrence: US)
  Receive Date: 20131010
  Receipt Date: 20140214
  Transmission Date: 20141002
  Serious: Yes (Other)
  Sender: FDA-Public Use
  Company Number: US-ROCHE-1287239

PATIENT
  Age: 62 Year
  Sex: Male

DRUGS (5)
  1. XOLAIR [Suspect]
     Indication: ASTHMA
     Route: 058
     Dates: start: 2004
  2. MEDROL [Concomitant]
     Indication: SINUSITIS
     Dosage: FOR 3 DAYS
     Route: 048
     Dates: start: 20130821, end: 20130823
  3. XOPENEX HFA [Concomitant]
     Indication: ASTHMA
     Dosage: 2 PUFFS
     Route: 055
     Dates: start: 2012
  4. FEXOFENADINE [Concomitant]
     Indication: ASTHMA
     Route: 048
     Dates: start: 2010
  5. DULERA [Concomitant]
     Indication: ASTHMA
     Route: 055

REACTIONS (3)
  - Epiglottitis [Unknown]
  - Hypersensitivity [Unknown]
  - Dyspnoea [Unknown]
